FAERS Safety Report 6687973-1 (Version None)
Quarter: 2010Q2

REPORT INFORMATION
  Report Type: 
  Country: None (occurrence: None)
  Receive Date: 20100420
  Receipt Date: 20100408
  Transmission Date: 20101027
  Serious: Yes (Hospitalization, Other)
  Sender: FDA-Public Use
  Company Number: FR-WYE-H14536410

PATIENT
  Age: 89 Year
  Sex: Female

DRUGS (6)
  1. CORDARONE [Suspect]
     Indication: TACHYARRHYTHMIA
     Route: 048
     Dates: start: 20090327
  2. PREVISCAN [Interacting]
     Dosage: 10 MG ALTERNATING WITH 15 MG EVERY OTHER DAY
     Route: 048
     Dates: end: 20090408
  3. MOXONIDINE [Concomitant]
     Dosage: UNSPECIFIED
  4. LESCOL [Concomitant]
     Dosage: UNSPECIFIED
  5. LASIX [Concomitant]
     Dosage: UNSPECIFIED
  6. ZOLPIDEM [Concomitant]
     Dosage: UNSPECIFIED

REACTIONS (6)
  - DRUG INTERACTION [None]
  - HAEMATOMA [None]
  - HAEMOGLOBIN DECREASED [None]
  - INTERNATIONAL NORMALISED RATIO INCREASED [None]
  - LOSS OF CONSCIOUSNESS [None]
  - MALAISE [None]
